FAERS Safety Report 13570672 (Version 1)
Quarter: 2017Q2

REPORT INFORMATION
  Report Type: Spontaneous
  Country: DE (occurrence: DE)
  Receive Date: 20170523
  Receipt Date: 20170523
  Transmission Date: 20170830
  Serious: Yes (Other)
  Sender: FDA-Public Use
  Company Number: DE-BIOGEN-2017BI00404603

PATIENT
  Age: 0 Day
  Sex: Female

DRUGS (3)
  1. MAGENSIUM [Concomitant]
     Indication: PRODUCT USED FOR UNKNOWN INDICATION
     Route: 065
     Dates: start: 2016
  2. AVONEX [Suspect]
     Active Substance: INTERFERON BETA-1A
     Indication: MATERNAL EXPOSURE TIMING UNSPECIFIED
     Route: 064
     Dates: start: 2010
  3. PROGESTAN [Concomitant]
     Active Substance: PROGESTERONE
     Indication: PRODUCT USED FOR UNKNOWN INDICATION
     Route: 065
     Dates: start: 2016

REACTIONS (2)
  - Low birth weight baby [Unknown]
  - Foetal exposure timing unspecified [Recovered/Resolved]

NARRATIVE: CASE EVENT DATE: 20170119
